FAERS Safety Report 6614557-3 (Version None)
Quarter: 2010Q1

REPORT INFORMATION
  Report Type: 
  Country: None (occurrence: None)
  Receive Date: 20100304
  Receipt Date: 20100304
  Transmission Date: 20100710
  Serious: Yes (Other)
  Sender: FDA-Public Use
  Company Number: None

PATIENT
  Sex: Female
  Weight: 54.4316 kg

DRUGS (1)
  1. LISINOPRIL AND HYDROCHLOROTHIAZIDE [Suspect]
     Indication: HYPERTENSION
     Dosage: 20-12.5 TAB EACH DAY MOUTH
     Route: 048
     Dates: start: 20100201, end: 20100213

REACTIONS (2)
  - NASOPHARYNGITIS [None]
  - PYREXIA [None]
